FAERS Safety Report 6519136-4 (Version None)
Quarter: 2009Q4

REPORT INFORMATION
  Report Type: 
  Country: None (occurrence: None)
  Receive Date: 20091228
  Receipt Date: 20091221
  Transmission Date: 20100525
  Serious: Yes (Other)
  Sender: FDA-Public Use
  Company Number: GB-ROXANE LABORATORIES, INC.-2009-RO-01279RO

PATIENT
  Age: 35 Year
  Sex: Male

DRUGS (5)
  1. MORPHINE [Suspect]
     Indication: PROCEDURAL PAIN
  2. ONDANSETRON [Suspect]
     Indication: VOMITING
  3. METOCLOPRAMIDE [Suspect]
     Indication: VOMITING
  4. PROCHLORPERAZINE [Suspect]
     Indication: VOMITING
  5. FENTANYL-100 [Concomitant]

REACTIONS (9)
  - COLLAPSE OF LUNG [None]
  - DIAPHRAGMATIC HERNIA [None]
  - DIAPHRAGMATIC RUPTURE [None]
  - HAEMATOMA [None]
  - INFUSION SITE EXTRAVASATION [None]
  - PLEURAL EFFUSION [None]
  - RESPIRATORY FAILURE [None]
  - SUBCUTANEOUS EMPHYSEMA [None]
  - VOMITING [None]
